FAERS Safety Report 22090390 (Version 2)
Quarter: 2023Q1

REPORT INFORMATION
  Report Type: Spontaneous
  Country: US (occurrence: US)
  Receive Date: 20230313
  Receipt Date: 20230316
  Transmission Date: 20230418
  Serious: Yes (Hospitalization, Other)
  Sender: FDA-Public Use
  Company Number: US-009507513-2303USA002338

PATIENT
  Age: 80 Year
  Sex: Female
  Weight: 56.916 kg

DRUGS (1)
  1. DIFICID [Suspect]
     Active Substance: FIDAXOMICIN
     Indication: Clostridium difficile infection
     Dosage: UNK
     Route: 048
     Dates: start: 20230118, end: 20230125

REACTIONS (5)
  - Clostridium difficile infection [Unknown]
  - Ill-defined disorder [Unknown]
  - Abdominal pain upper [Recovering/Resolving]
  - Asthenia [Recovering/Resolving]
  - Lethargy [Recovering/Resolving]

NARRATIVE: CASE EVENT DATE: 20230101
